FAERS Safety Report 9237066 (Version 1)
Quarter: 2013Q2

REPORT INFORMATION
  Report Type: Spontaneous
  Country: GB (occurrence: GB)
  Receive Date: 20130417
  Receipt Date: 20130417
  Transmission Date: 20140414
  Serious: Yes (Hospitalization)
  Sender: FDA-Public Use
  Company Number: GB-BANPHARM-20131155

PATIENT
  Age: 18 Year
  Sex: Male

DRUGS (1)
  1. IBUPROFEN UNKNOWN PRODUCT [Suspect]
     Indication: BACK PAIN
     Dosage: 400 MG SEVEN TIMES A DAY,

REACTIONS (3)
  - Pancreatitis acute [Recovered/Resolved]
  - Intentional self-injury [Recovered/Resolved]
  - Intentional overdose [Recovered/Resolved]
